FAERS Safety Report 18323921 (Version 1)
Quarter: 2020Q3

REPORT INFORMATION
  Report Type: Spontaneous
  Country: GB (occurrence: GB)
  Receive Date: 20200929
  Receipt Date: 20200929
  Transmission Date: 20201103
  Serious: Yes (Death, Other)
  Sender: FDA-Public Use
  Company Number: GB-MYLANLABS-2020M1079141

PATIENT
  Age: 8 Month
  Sex: Female

DRUGS (9)
  1. CICLOSPORIN [Suspect]
     Active Substance: CYCLOSPORINE
     Indication: GRAFT VERSUS HOST DISEASE IN SKIN
     Dosage: UNK
  2. TREOSULFAN [Suspect]
     Active Substance: TREOSULFAN
     Indication: BONE MARROW CONDITIONING REGIMEN
  3. THIOTEPA. [Suspect]
     Active Substance: THIOTEPA
     Indication: COMBINED IMMUNODEFICIENCY
  4. RITUXIMAB. [Suspect]
     Active Substance: RITUXIMAB
     Indication: COMBINED IMMUNODEFICIENCY
     Dosage: UNK
  5. TREOSULFAN [Suspect]
     Active Substance: TREOSULFAN
     Indication: COMBINED IMMUNODEFICIENCY
     Dosage: 36 G/M2
  6. THIOTEPA. [Suspect]
     Active Substance: THIOTEPA
     Indication: BONE MARROW CONDITIONING REGIMEN
     Dosage: 10 MG/KG
  7. FLUDARABINE [Suspect]
     Active Substance: FLUDARABINE PHOSPHATE
     Indication: BONE MARROW CONDITIONING REGIMEN
     Dosage: 160 MG/M2
  8. RITUXIMAB. [Suspect]
     Active Substance: RITUXIMAB
     Indication: BONE MARROW CONDITIONING REGIMEN
  9. FLUDARABINE [Suspect]
     Active Substance: FLUDARABINE PHOSPHATE
     Indication: COMBINED IMMUNODEFICIENCY

REACTIONS (8)
  - Graft versus host disease in skin [Unknown]
  - Mucosal inflammation [Unknown]
  - Capillary leak syndrome [Unknown]
  - Viraemia [Unknown]
  - Adenovirus infection [Unknown]
  - Rash [Unknown]
  - Off label use [Unknown]
  - Thrombotic microangiopathy [Fatal]
